FAERS Safety Report 8399348-8 (Version None)
Quarter: 2012Q2

REPORT INFORMATION
  Report Type: 
  Country: None (occurrence: None)
  Receive Date: 20120531
  Receipt Date: 20120521
  Transmission Date: 20120825
  Serious: Yes (Hospitalization)
  Sender: FDA-Public Use
  Company Number: DE-JNJFOC-20110901171

PATIENT
  Sex: Female
  Weight: 46 kg

DRUGS (7)
  1. USTEKINUMAB [Suspect]
     Indication: PSORIASIS
     Route: 058
     Dates: start: 20100324, end: 20101101
  2. CALCIUM [Concomitant]
     Route: 048
  3. FLUOXETINE HCL [Concomitant]
     Route: 048
  4. DICLOFENAC [Concomitant]
     Route: 048
  5. AMITRIPTYLINE HCL [Concomitant]
     Route: 048
  6. SIMVASTATIN [Concomitant]
     Route: 048
  7. PANTOPRAZOLE [Concomitant]
     Route: 048

REACTIONS (5)
  - ARTHRALGIA [None]
  - WEIGHT DECREASED [None]
  - NIGHT SWEATS [None]
  - PSORIASIS [None]
  - RENAL IMPAIRMENT [None]
